FAERS Safety Report 6204866-4 (Version None)
Quarter: 2009Q2

REPORT INFORMATION
  Report Type: 
  Country: None (occurrence: None)
  Receive Date: 20090522
  Receipt Date: 20090508
  Transmission Date: 20091009
  Serious: Yes (Other)
  Sender: FDA-Public Use
  Company Number: 2009EN000162

PATIENT
  Age: 16 Year
  Sex: Male

DRUGS (1)
  1. ONCASPAR [Suspect]
     Indication: DRUG USE FOR UNKNOWN INDICATION

REACTIONS (6)
  - ERYTHEMA [None]
  - HYPOTENSION [None]
  - PRURITUS [None]
  - RESPIRATORY DISTRESS [None]
  - TACHYCARDIA [None]
  - URTICARIA [None]
